FAERS Safety Report 7973017-8 (Version None)
Quarter: 2011Q4

REPORT INFORMATION
  Report Type: 
  Country: None (occurrence: None)
  Receive Date: 20111213
  Receipt Date: 20111206
  Transmission Date: 20120403
  Serious: Yes (Hospitalization)
  Sender: FDA-Public Use
  Company Number: US-BRISTOL-MYERS SQUIBB COMPANY-16273393

PATIENT
  Age: 54 Year
  Sex: Female
  Weight: 82 kg

DRUGS (5)
  1. ORENCIA [Suspect]
     Indication: RHEUMATOID ARTHRITIS
     Route: 042
  2. PREDNISONE [Concomitant]
  3. PRILOSEC [Concomitant]
  4. VITAMIN TAB [Concomitant]
  5. OSCAL D [Concomitant]

REACTIONS (6)
  - CONSTIPATION [None]
  - ULCER [None]
  - ANAEMIA [None]
  - RENAL CYST [None]
  - COLITIS [None]
  - PYREXIA [None]
